FAERS Safety Report 13616167 (Version 1)
Quarter: 2017Q2

REPORT INFORMATION
  Report Type: Spontaneous
  Country: US (occurrence: US)
  Receive Date: 20170606
  Receipt Date: 20170606
  Transmission Date: 20170830
  Serious: Yes (Hospitalization, Other)
  Sender: FDA-Public Use
  Company Number: US-ACCORD-052202

PATIENT
  Age: 67 Year
  Sex: Male

DRUGS (13)
  1. ALENDRONATE SODIUM/ALENDRONIC ACID [Concomitant]
  2. MYCOPHENOLIC ACID. [Concomitant]
     Active Substance: MYCOPHENOLIC ACID
  3. TACROLIMUS. [Suspect]
     Active Substance: TACROLIMUS
     Indication: PRODUCT USED FOR UNKNOWN INDICATION
  4. DABIGATRAN/DABIGATRAN ETEXILATE [Interacting]
     Active Substance: DABIGATRAN ETEXILATE
     Indication: ATRIAL FIBRILLATION
  5. METOPROLOL. [Concomitant]
     Active Substance: METOPROLOL
  6. ATORVASTATIN [Concomitant]
     Active Substance: ATORVASTATIN
  7. TRAZODONE [Concomitant]
     Active Substance: TRAZODONE HYDROCHLORIDE
  8. UBIDECARENONE [Concomitant]
     Active Substance: UBIDECARENONE
  9. PREDNISONE. [Concomitant]
     Active Substance: PREDNISONE
  10. TAMSULOSIN/TAMSULOSIN HYDROCHLORIDE [Concomitant]
  11. SOTALOL. [Concomitant]
     Active Substance: SOTALOL
  12. COLECALCIFEROL [Concomitant]
     Active Substance: CHOLECALCIFEROL
  13. DUTASTERIDE. [Concomitant]
     Active Substance: DUTASTERIDE

REACTIONS (4)
  - Brown-Sequard syndrome [Recovered/Resolved]
  - Subdural haematoma [Recovered/Resolved]
  - Drug interaction [Recovered/Resolved]
  - Subarachnoid haematoma [Recovered/Resolved]
